FAERS Safety Report 4925947-9 (Version None)
Quarter: 2006Q1

REPORT INFORMATION
  Report Type: 
  Country: None (occurrence: None)
  Receive Date: 20060228
  Receipt Date: 20050418
  Transmission Date: 20060701
  Serious: Yes (Other)
  Sender: FDA-Public Use
  Company Number: US-GLAXOSMITHKLINE-A0554843A

PATIENT
  Age: 81 Year
  Sex: Female
  Weight: 81.8 kg

DRUGS (6)
  1. LAMICTAL [Suspect]
     Indication: BIPOLAR DISORDER
     Route: 048
  2. SEROQUEL [Concomitant]
     Dosage: 200MG PER DAY
     Route: 048
     Dates: start: 20050222
  3. DEPAKOTE [Concomitant]
     Dosage: 1500MG AT NIGHT
     Route: 048
     Dates: start: 20050222
  4. UNKNOWN MEDICATION [Concomitant]
     Route: 048
     Dates: start: 20050222
  5. KLONOPIN [Concomitant]
     Dosage: .5MG AT NIGHT
     Route: 048
     Dates: start: 20050222
  6. TRAZODONE [Concomitant]
     Indication: SLEEP DISORDER
     Dosage: 50MG AT NIGHT
     Route: 048

REACTIONS (2)
  - RASH [None]
  - SWELLING FACE [None]
